FAERS Safety Report 13448476 (Version 3)
Quarter: 2017Q3

REPORT INFORMATION
  Report Type: Report from Study
  Country: US (occurrence: US)
  Receive Date: 20170417
  Receipt Date: 20170809
  Transmission Date: 20171127
  Serious: Yes (Hospitalization)
  Sender: FDA-Public Use
  Company Number: US-BAYER-2017-072294

PATIENT
  Age: 63 Year
  Sex: Female

DRUGS (3)
  1. STIVARGA [Suspect]
     Active Substance: REGORAFENIB
     Indication: COLON CANCER
     Dosage: 160 MG DAILY
     Route: 048
     Dates: start: 20170331, end: 2017
  2. STIVARGA [Suspect]
     Active Substance: REGORAFENIB
     Indication: COLON CANCER
     Dosage: 160 MG, QD
     Route: 048
     Dates: start: 2017
  3. STIVARGA [Suspect]
     Active Substance: REGORAFENIB
     Indication: COLON CANCER
     Dosage: DAILY DOSE 160 MG
     Route: 048
     Dates: start: 2017, end: 2017

REACTIONS (9)
  - Surgery [None]
  - Neuropathy peripheral [None]
  - Arthralgia [None]
  - Malaise [None]
  - Stomatitis [None]
  - Drug dose omission [None]
  - Nausea [None]
  - Arthralgia [None]
  - Tremor [None]

NARRATIVE: CASE EVENT DATE: 2017
